FAERS Safety Report 7515029-4 (Version None)
Quarter: 2011Q2

REPORT INFORMATION
  Report Type: 
  Country: None (occurrence: None)
  Receive Date: 20110601
  Receipt Date: 20110526
  Transmission Date: 20111010
  Serious: Yes (Hospitalization)
  Sender: FDA-Public Use
  Company Number: DE-SANOFI-AVENTIS-2011SA032879

PATIENT
  Age: 78 Year
  Sex: Female
  Weight: 88 kg

DRUGS (12)
  1. DICLOFENAC SODIUM [Concomitant]
     Route: 048
     Dates: start: 20080101, end: 20100625
  2. CEFOTIAM HYDROCHLORIDE [Concomitant]
     Indication: INFECTION PROPHYLAXIS
     Route: 042
     Dates: start: 20100623, end: 20100625
  3. DORMO-PUREN [Concomitant]
     Indication: SLEEP DISORDER
     Dosage: DOSIS IST UNBEKANNT
     Route: 048
     Dates: start: 20100624, end: 20100709
  4. LEVOTHYROXINE SODIUM [Concomitant]
     Route: 048
     Dates: start: 20100706
  5. ENOXAPARIN SODIUM [Suspect]
     Route: 058
     Dates: start: 20100622, end: 20100805
  6. NOVALGIN [Concomitant]
     Route: 048
     Dates: start: 20100623, end: 20100625
  7. METFORMIN HCL [Concomitant]
     Indication: TYPE 2 DIABETES MELLITUS
     Route: 048
     Dates: start: 20080101
  8. CANDESARTAN CILEXETIL/HYDROCHLOROTHIAZIDE [Concomitant]
     Dosage: 1 DF= 16MG CANDESARTANCILEXETIL + 12,5MG HYDROCHLOROTHIAZID
     Route: 048
  9. BISOPROLOL FUMARATE [Concomitant]
     Route: 048
  10. FURESIS [Concomitant]
     Route: 042
     Dates: start: 20100625, end: 20100625
  11. PHENPROCOUMON [Concomitant]
     Route: 048
     Dates: start: 20050101, end: 20100610
  12. LEVOTHYROXINE SODIUM [Concomitant]
     Indication: HYPOTHYROIDISM
     Route: 048
     Dates: start: 20080101

REACTIONS (2)
  - HAEMATOMA [None]
  - WOUND SECRETION [None]
